FAERS Safety Report 25335513 (Version 1)
Quarter: 2025Q2

REPORT INFORMATION
  Report Type: Spontaneous
  Country: GB (occurrence: GB)
  Receive Date: 20250520
  Receipt Date: 20250520
  Transmission Date: 20250716
  Serious: Yes (Hospitalization, Disabling, Other)
  Sender: SANOFI AVENTIS
  Company Number: None

PATIENT
  Sex: Female

DRUGS (19)
  1. ACETAMINOPHEN [Suspect]
     Active Substance: ACETAMINOPHEN
     Indication: Blood cholesterol abnormal
  2. CALCIUM CARBONATE [Suspect]
     Active Substance: CALCIUM CARBONATE
  3. CALCIUM CARBONATE [Suspect]
     Active Substance: CALCIUM CARBONATE
  4. ALENDRONATE SODIUM [Suspect]
     Active Substance: ALENDRONATE SODIUM
  5. ASPIRIN [Suspect]
     Active Substance: ASPIRIN
  6. ATORVASTATIN [Suspect]
     Active Substance: ATORVASTATIN
  7. CLOPIDOGREL BISULFATE [Suspect]
     Active Substance: CLOPIDOGREL BISULFATE
  8. IBUPROFEN [Suspect]
     Active Substance: IBUPROFEN
  9. LANSOPRAZOLE [Suspect]
     Active Substance: LANSOPRAZOLE
  10. MIRTAZAPINE [Suspect]
     Active Substance: MIRTAZAPINE
  11. ACETAMINOPHEN [Suspect]
     Active Substance: ACETAMINOPHEN
  12. RAMIPRIL [Suspect]
     Active Substance: RAMIPRIL
  13. CALCIUM CARBONATE\CHOLECALCIFEROL [Concomitant]
     Active Substance: CALCIUM CARBONATE\CHOLECALCIFEROL
  14. ALENDRONATE SODIUM [Concomitant]
     Active Substance: ALENDRONATE SODIUM
  15. CETIRIZINE [Concomitant]
     Active Substance: CETIRIZINE HYDROCHLORIDE
  16. CETIRIZINE [Concomitant]
     Active Substance: CETIRIZINE HYDROCHLORIDE
  17. CITALOPRAM [Concomitant]
     Active Substance: CITALOPRAM
  18. LANTUS [Concomitant]
     Active Substance: INSULIN GLARGINE
  19. SIMVASTATIN [Concomitant]
     Active Substance: SIMVASTATIN

REACTIONS (30)
  - Muscle twitching [Unknown]
  - Asthenia [Unknown]
  - Osteitis [Unknown]
  - Labyrinthitis [Not Recovered/Not Resolved]
  - Arthritis [Not Recovered/Not Resolved]
  - Balance disorder [Unknown]
  - Arthralgia [Unknown]
  - Malaise [Not Recovered/Not Resolved]
  - Tooth fracture [Not Recovered/Not Resolved]
  - Loose tooth [Not Recovered/Not Resolved]
  - Chronic fatigue syndrome [Unknown]
  - Coordination abnormal [Unknown]
  - Fatigue [Unknown]
  - Blood calcium decreased [Not Recovered/Not Resolved]
  - Constipation [Not Recovered/Not Resolved]
  - Fall [Unknown]
  - Nausea [Unknown]
  - Coeliac disease [Unknown]
  - General physical health deterioration [Not Recovered/Not Resolved]
  - Asthenia [Unknown]
  - Noninfective gingivitis [Unknown]
  - Mobility decreased [Not Recovered/Not Resolved]
  - Angiopathy [Unknown]
  - Parkinson^s disease [Unknown]
  - Dyspepsia [Unknown]
  - Agitation [Unknown]
  - Abdominal discomfort [Unknown]
  - Flank pain [Unknown]
  - Oedema peripheral [Unknown]
  - Diarrhoea [Unknown]

NARRATIVE: CASE EVENT DATE: 20210101
